FAERS Safety Report 4470026-0 (Version None)
Quarter: 2004Q3

REPORT INFORMATION
  Report Type: 
  Country: None (occurrence: None)
  Receive Date: 20040920
  Receipt Date: 20040805
  Transmission Date: 20050211
  Serious: No
  Sender: FDA-Public Use
  Company Number: PHEH2004US08459

PATIENT
  Age: 56 Year
  Sex: Male

DRUGS (7)
  1. ZOMETA [Suspect]
     Indication: METASTASES TO BONE
     Dosage: 4 MG, ONCE/SINGLE, INTRAVENOUS
     Route: 042
     Dates: start: 20040624
  2. CASODEX [Concomitant]
  3. TOPROL-XL [Concomitant]
  4. NIACIN [Concomitant]
  5. HYZAAR [Concomitant]
  6. ASPIRIN [Concomitant]
  7. MVI (VITAMINS NOS) [Concomitant]

REACTIONS (4)
  - DIZZINESS [None]
  - EAR PAIN [None]
  - HEADACHE [None]
  - HEARING IMPAIRED [None]
